FAERS Safety Report 7915509-3 (Version None)
Quarter: 2011Q4

REPORT INFORMATION
  Report Type: 
  Country: None (occurrence: None)
  Receive Date: 20111115
  Receipt Date: 20111108
  Transmission Date: 20120403
  Serious: Yes (Other)
  Sender: FDA-Public Use
  Company Number: JP-JNJFOC-20111006215

PATIENT
  Age: 3 Decade
  Sex: Female

DRUGS (1)
  1. REMICADE [Suspect]
     Indication: CROHN'S DISEASE
     Dosage: RECEIVED 10 DOSES
     Route: 042

REACTIONS (4)
  - GUTTATE PSORIASIS [None]
  - ALOPECIA [None]
  - RASH [None]
  - PUSTULAR PSORIASIS [None]
